FAERS Safety Report 7556229-7 (Version None)
Quarter: 2011Q2

REPORT INFORMATION
  Report Type: 
  Country: None (occurrence: None)
  Receive Date: 20110615
  Receipt Date: 20110615
  Transmission Date: 20111010
  Serious: Yes (Disabling, Other)
  Sender: FDA-Public Use
  Company Number: None

PATIENT
  Sex: Female
  Weight: 90.7194 kg

DRUGS (5)
  1. NORCO [Concomitant]
  2. LISINOPRIL [Concomitant]
  3. ZYRTEC [Concomitant]
  4. OXYCONTIN [Concomitant]
  5. SINGULAIR [Suspect]
     Indication: ASTHMA
     Dosage: 1 TABLET ONCE PER DAY PO
     Route: 048
     Dates: start: 20070801, end: 20110515

REACTIONS (1)
  - RETINAL HAEMORRHAGE [None]
